FAERS Safety Report 8661912 (Version 2)
Quarter: 2012Q4

REPORT INFORMATION
  Report Type: 
  Country: US (occurrence: US)
  Receive Date: 20120712
  Receipt Date: 20120830
  Transmission Date: 20130627
  Serious: Yes (Hospitalization)
  Sender: FDA-Public Use
  Company Number: US-GILEAD-2012-0057594

PATIENT
  Sex: Female

DRUGS (1)
  1. RANEXA [Suspect]
     Indication: PRODUCT USED FOR UNKNOWN INDICATION
     Dosage: 1000 mg, BID

REACTIONS (3)
  - Chest pain [Unknown]
  - Medication residue [Unknown]
  - Drug ineffective [Unknown]
